FAERS Safety Report 7455443-9 (Version None)
Quarter: 2011Q2

REPORT INFORMATION
  Report Type: 
  Country: None (occurrence: None)
  Receive Date: 20110503
  Receipt Date: 20110426
  Transmission Date: 20111010
  Serious: Yes (Other)
  Sender: FDA-Public Use
  Company Number: NL-ABBOTT-11P-114-0722415-00

PATIENT
  Sex: Female
  Weight: 65 kg

DRUGS (8)
  1. LEVOTHYROXINE SODIUM [Concomitant]
     Indication: THYROID DISORDER
     Route: 048
     Dates: start: 20000101
  2. CODEINE W/PARACETAMOL [Concomitant]
     Indication: ARTHRALGIA
     Dosage: 500/10MG
     Route: 048
     Dates: start: 20100101
  3. COLECALCIFEROL [Concomitant]
     Indication: VITAMIN SUPPLEMENTATION
     Dosage: BEVERAGE
     Route: 048
     Dates: start: 20100101
  4. FOLIC ACID [Concomitant]
     Indication: VITAMIN SUPPLEMENTATION
     Route: 048
     Dates: start: 20100101
  5. HUMIRA [Suspect]
     Indication: RHEUMATOID ARTHRITIS
     Route: 058
     Dates: start: 20100701, end: 20100801
  6. METHOTREXATE [Concomitant]
     Indication: RHEUMATOID ARTHRITIS
     Dosage: 20 FLUID FOR INJECTION 10 MG/L DISPOSABLE SYRINGE
     Route: 058
     Dates: start: 20100101
  7. CARBAMAZEPINE [Concomitant]
     Indication: ARTHRALGIA
     Route: 048
     Dates: start: 20100101
  8. ETORICOXIB [Concomitant]
     Indication: RHEUMATOID ARTHRITIS
     Route: 048
     Dates: start: 20100101

REACTIONS (2)
  - RHEUMATOID ARTHRITIS [None]
  - OSTEITIS [None]
